FAERS Safety Report 9100418 (Version 1)
Quarter: 2013Q1

REPORT INFORMATION
  Report Type: Spontaneous
  Country: US (occurrence: US)
  Receive Date: 20130215
  Receipt Date: 20130215
  Transmission Date: 20140127
  Serious: Yes (Other)
  Sender: FDA-Public Use
  Company Number: US-TEVA-385801USA

PATIENT
  Sex: Male

DRUGS (2)
  1. VENLAFAXINE [Suspect]
  2. PRISTIQ [Suspect]

REACTIONS (13)
  - Drug withdrawal syndrome [Unknown]
  - Nausea [Recovered/Resolved]
  - Diarrhoea [Recovered/Resolved]
  - Dizziness [Unknown]
  - Cold-stimulus headache [Unknown]
  - Joint stiffness [Unknown]
  - Muscle tightness [Unknown]
  - Back pain [Unknown]
  - Lethargy [Unknown]
  - Gingival pain [Unknown]
  - Toothache [Unknown]
  - Gastroenteritis viral [Unknown]
  - Back pain [None]
